FAERS Safety Report 8412379-4 (Version None)
Quarter: 2012Q2

REPORT INFORMATION
  Report Type: 
  Country: None (occurrence: None)
  Receive Date: 20120605
  Receipt Date: 20120518
  Transmission Date: 20120825
  Serious: No
  Sender: FDA-Public Use
  Company Number: US-AMGEN-USASP2012031560

PATIENT
  Age: 48 Year
  Sex: Male

DRUGS (1)
  1. ENBREL [Suspect]
     Indication: RHEUMATOID ARTHRITIS
     Dosage: 50 MG, QWK
     Dates: start: 20120501

REACTIONS (10)
  - RESTLESS LEGS SYNDROME [None]
  - INJECTION SITE PRURITUS [None]
  - RHEUMATOID ARTHRITIS [None]
  - FEELING JITTERY [None]
  - INSOMNIA [None]
  - BLOOD PRESSURE INCREASED [None]
  - INJECTION SITE ERYTHEMA [None]
  - DRUG INEFFECTIVE [None]
  - AGITATION [None]
  - TREMOR [None]
